FAERS Safety Report 7567988-1 (Version None)
Quarter: 2011Q2

REPORT INFORMATION
  Report Type: 
  Country: None (occurrence: None)
  Receive Date: 20110623
  Receipt Date: 20110617
  Transmission Date: 20111010
  Serious: Yes (Hospitalization)
  Sender: FDA-Public Use
  Company Number: US-SANOFI-AVENTIS-2011SA039455

PATIENT
  Sex: Male

DRUGS (1)
  1. MULTAQ [Suspect]
     Route: 048

REACTIONS (2)
  - HEPATORENAL SYNDROME [None]
  - ALANINE AMINOTRANSFERASE INCREASED [None]
